FAERS Safety Report 10024270 (Version 2)
Quarter: 2014Q2

REPORT INFORMATION
  Report Type: Spontaneous
  Country: FI (occurrence: FI)
  Receive Date: 20140320
  Receipt Date: 20140508
  Transmission Date: 20141212
  Serious: Yes (Death, Life-Threatening, Hospitalization, Other)
  Sender: FDA-Public Use
  Company Number: FI-PFIZER INC-2014075952

PATIENT
  Age: 58 Year
  Sex: Male

DRUGS (15)
  1. LYRICA [Suspect]
     Indication: PAIN
     Dosage: 225 MG, 3X/DAY
     Route: 048
  2. LYRICA [Interacting]
     Dosage: 600 MG, DAILY
     Route: 048
     Dates: start: 20110418
  3. NORITREN [Interacting]
     Indication: PAIN
     Dosage: 100 MG, DAILY
     Route: 048
     Dates: start: 20040506
  4. NORITREN [Interacting]
     Dosage: 100 MG, 2X/DAY
  5. PANACOD [Concomitant]
     Dosage: 2 TABLETS 3X/DAY
  6. ATACAND [Concomitant]
     Dosage: 16 MG, 1X/DAY
  7. PRIMASPAN [Concomitant]
     Dosage: 100 MG, 1X/DAY
  8. PAROXETINE [Concomitant]
     Dosage: 20 MG, 1X/DAY
  9. MIRTAZAPINE [Concomitant]
     Dosage: 45 MG, 1X/DAY
  10. NICOTINELL [Concomitant]
     Dosage: 21 MG, DAILY
     Route: 062
  11. PANTESTON [Concomitant]
     Dosage: 120 MG, DAILY
  12. TRIOBE [Concomitant]
     Dosage: 1 TABLET DAILY
  13. IBUSAL [Concomitant]
     Dosage: 800 MG, 3X/DAY WHEN NEEDED
  14. PARA-TABS [Concomitant]
     Dosage: 1 G, 1-3 X/DAY WHEN NEEDED
  15. VIMOVO [Concomitant]

REACTIONS (26)
  - Intentional product misuse [Fatal]
  - Death [Fatal]
  - Suicide attempt [Unknown]
  - Toxicity to various agents [Recovered/Resolved]
  - Depressed level of consciousness [Recovered/Resolved]
  - Drug level increased [Unknown]
  - General physical health deterioration [Recovered/Resolved]
  - Drug interaction [Unknown]
  - Infection [Unknown]
  - Vision blurred [Unknown]
  - Nystagmus [Unknown]
  - Dysarthria [Unknown]
  - Ataxia [Unknown]
  - Dizziness [Unknown]
  - Muscle twitching [Unknown]
  - Balance disorder [Unknown]
  - Visual impairment [Unknown]
  - Hypothermia [Unknown]
  - Blood creatinine increased [Unknown]
  - Leukocytosis [Unknown]
  - Normochromic normocytic anaemia [Unknown]
  - Carbon dioxide increased [Unknown]
  - Drug withdrawal syndrome [Unknown]
  - Abnormal behaviour [Unknown]
  - Agitation [Unknown]
  - Memory impairment [Unknown]
